FAERS Safety Report 5103597-1 (Version None)
Quarter: 2006Q3

REPORT INFORMATION
  Report Type: 
  Country: None (occurrence: None)
  Receive Date: 20060908
  Receipt Date: 20060908
  Transmission Date: 20061208
  Serious: Yes (Other)
  Sender: FDA-Public Use
  Company Number: None

PATIENT
  Sex: Female
  Weight: 54.4316 kg

DRUGS (2)
  1. MICONAZOLE [Suspect]
     Indication: GENITAL INFECTION FUNGAL
     Dosage: 600 MG MICONAZOLE NITRATE 3 VAG
     Route: 067
     Dates: start: 20060904, end: 20060906
  2. MICONAZOLE [Suspect]
     Dosage: 2% TOPICAL MICONAZOLE NITRATE 3 TOP
     Route: 061

REACTIONS (8)
  - ABDOMINAL DISTENSION [None]
  - ABDOMINAL PAIN [None]
  - CONSTIPATION [None]
  - DRUG HYPERSENSITIVITY [None]
  - PAIN [None]
  - RASH [None]
  - SKIN ULCER [None]
  - VAGINAL HAEMORRHAGE [None]
